FAERS Safety Report 4607842-8 (Version None)
Quarter: 2005Q1

REPORT INFORMATION
  Report Type: 
  Country: None (occurrence: None)
  Receive Date: 20050310
  Receipt Date: 20050223
  Transmission Date: 20050727
  Serious: Yes (Hospitalization)
  Sender: FDA-Public Use
  Company Number: F01200403436

PATIENT
  Age: 58 Year
  Sex: Male

DRUGS (10)
  1. (OXALIPLATIN) - SOLUTION - 234 MG  (CAPECITABINE) - TABLET - 1800 MG [Suspect]
     Indication: COLON CANCER
     Dosage: 234 MG Q3W, INTRAVENOUS NOS
     Route: 042
     Dates: start: 20041004, end: 20041004
  2. (CAPECITABINE) - TABLET - 1800 MG [Suspect]
     Dosage: 1800 MG TWICE A DAY PER ORAL FROM D1 TO D15, Q3W ORAL
     Route: 048
     Dates: start: 20041004, end: 20041028
  3. ATIVAN [Concomitant]
  4. ESTROGEL [Concomitant]
  5. SYNTHROID [Concomitant]
  6. LOSEC (OMEPRAZOLE) [Concomitant]
  7. IMODIUM [Concomitant]
  8. PROCHLORPERAZINE [Concomitant]
  9. ZOFRAN [Concomitant]
  10. PANTOPRAZOLE SODIUM [Concomitant]

REACTIONS (8)
  - ABDOMINAL PAIN [None]
  - BLOOD POTASSIUM DECREASED [None]
  - DEEP VEIN THROMBOSIS [None]
  - DIARRHOEA [None]
  - GENERAL PHYSICAL HEALTH DETERIORATION [None]
  - HAEMOGLOBIN DECREASED [None]
  - NAUSEA [None]
  - VOMITING [None]
